FAERS Safety Report 25062894 (Version 5)
Quarter: 2025Q1

REPORT INFORMATION
  Report Type: Spontaneous
  Country: US (occurrence: US)
  Receive Date: 20250311
  Receipt Date: 20250328
  Transmission Date: 20250408
  Serious: No
  Sender: KARYOPHARM THERAPEUTICS
  Company Number: US-KARYOPHARM-2025KPT000240

PATIENT

DRUGS (19)
  1. XPOVIO [Suspect]
     Active Substance: SELINEXOR
     Indication: Plasma cell myeloma
     Route: 048
     Dates: start: 20250302
  2. LIPITOR [Concomitant]
     Active Substance: ATORVASTATIN CALCIUM
  3. NORVASC [Concomitant]
     Active Substance: AMLODIPINE BESYLATE
  4. TRAMADOL [Concomitant]
     Active Substance: TRAMADOL
  5. MEDROL [Concomitant]
     Active Substance: METHYLPREDNISOLONE
  6. MORPHINE [Concomitant]
     Active Substance: MORPHINE
  7. LORAZEPAM [Concomitant]
     Active Substance: LORAZEPAM
  8. LEVSIN [Concomitant]
     Active Substance: HYOSCYAMINE SULFATE
  9. OXYCODONE [Concomitant]
     Active Substance: OXYCODONE
  10. LEVOTHYROXINE [Concomitant]
     Active Substance: LEVOTHYROXINE
  11. VOQUEZNA DUAL PAK [Concomitant]
     Active Substance: AMOXICILLIN\VONOPRAZAN FUMARATE
  12. VALTREX [Concomitant]
     Active Substance: VALACYCLOVIR HYDROCHLORIDE
  13. ZOLOFT [Concomitant]
     Active Substance: SERTRALINE HYDROCHLORIDE
  14. PREVIDENT [Concomitant]
     Active Substance: SODIUM FLUORIDE
  15. DEXAMETHASONE [Concomitant]
     Active Substance: DEXAMETHASONE
  16. XGEVA [Concomitant]
     Active Substance: DENOSUMAB
  17. TRULANCE [Concomitant]
     Active Substance: PLECANATIDE
  18. TRESANIL [ALPRAZOLAM] [Concomitant]
  19. PROCHLORPERAZINE [Concomitant]
     Active Substance: PROCHLORPERAZINE

REACTIONS (5)
  - Dyspepsia [Recovering/Resolving]
  - Abdominal distension [Not Recovered/Not Resolved]
  - Nausea [Recovering/Resolving]
  - Diarrhoea [Recovered/Resolved]
  - Constipation [Unknown]

NARRATIVE: CASE EVENT DATE: 20250301
